FAERS Safety Report 25093457 (Version 1)
Quarter: 2025Q1

REPORT INFORMATION
  Report Type: Spontaneous
  Country: FR (occurrence: FR)
  Receive Date: 20250319
  Receipt Date: 20250319
  Transmission Date: 20250408
  Serious: Yes (Other)
  Sender: ROCHE
  Company Number: FR-ROCHE-10000233344

PATIENT
  Age: 79 Year
  Sex: Male

DRUGS (1)
  1. MABTHERA [Suspect]
     Active Substance: RITUXIMAB
     Indication: Lymphoma
     Route: 042

REACTIONS (2)
  - Marginal zone lymphoma [Unknown]
  - Haemolytic anaemia [Unknown]
